FAERS Safety Report 20282287 (Version 2)
Quarter: 2022Q1

REPORT INFORMATION
  Report Type: Spontaneous
  Country: NZ (occurrence: NZ)
  Receive Date: 20220103
  Receipt Date: 20220104
  Transmission Date: 20220423
  Serious: No
  Sender: FDA-Public Use
  Company Number: NZ-MYLANLABS-2021M1097429

PATIENT
  Sex: Female

DRUGS (1)
  1. CLOZARIL [Suspect]
     Active Substance: CLOZAPINE
     Indication: Schizophrenia
     Dosage: UNK
     Route: 048
     Dates: start: 20040603

REACTIONS (3)
  - Platelet count decreased [Unknown]
  - Mean cell haemoglobin decreased [Unknown]
  - Neutrophil count decreased [Unknown]
